FAERS Safety Report 8120294-9 (Version None)
Quarter: 2012Q1

REPORT INFORMATION
  Report Type: 
  Country: None (occurrence: None)
  Receive Date: 20120207
  Receipt Date: 20120201
  Transmission Date: 20120608
  Serious: Yes (Other)
  Sender: FDA-Public Use
  Company Number: US-GLAXOSMITHKLINE-A0867547A

PATIENT
  Age: 57 Year
  Sex: Female

DRUGS (1)
  1. PROMACTA [Suspect]
     Indication: IDIOPATHIC THROMBOCYTOPENIC PURPURA
     Dosage: 50MG PER DAY
     Route: 048
     Dates: start: 20100127, end: 20100215

REACTIONS (5)
  - PANCYTOPENIA [None]
  - KARYOTYPE ANALYSIS ABNORMAL [None]
  - ACUTE MYELOID LEUKAEMIA [None]
  - ADENOMA BENIGN [None]
  - DRUG INEFFECTIVE [None]
